FAERS Safety Report 4449755-0 (Version None)
Quarter: 2004Q3

REPORT INFORMATION
  Report Type: 
  Country: None (occurrence: None)
  Receive Date: 20040913
  Receipt Date: 20040824
  Transmission Date: 20050211
  Serious: Yes (Death, Hospitalization)
  Sender: FDA-Public Use
  Company Number: F01200402274

PATIENT
  Age: 62 Year
  Sex: Female

DRUGS (2)
  1. (OXALIPLATIN) - SOLUTION - 130 MG/M2 [Suspect]
     Indication: NON-SMALL CELL LUNG CANCER
     Dosage: 130 MG/M2 Q3W, INTRAVENOUS NOS
     Route: 042
     Dates: start: 20040713, end: 20040713
  2. (GEMCITABINE) - SOLUTION - 1000 MG/M2 [Suspect]
     Dosage: 1000 MG/M2 Q3W, INTRAVENOUS NOS
     Route: 042
     Dates: start: 20040720, end: 20040720

REACTIONS (15)
  - AMMONIA INCREASED [None]
  - COMA [None]
  - ENCEPHALOPATHY [None]
  - EROSIVE OESOPHAGITIS [None]
  - GASTRITIS EROSIVE [None]
  - GASTROINTESTINAL HAEMORRHAGE [None]
  - GASTROINTESTINAL MUCOSAL DISORDER [None]
  - HAEMATOCRIT DECREASED [None]
  - HAEMOGLOBIN DECREASED [None]
  - HEPATOTOXICITY [None]
  - LEUKOPENIA [None]
  - MELAENA [None]
  - PETECHIAE [None]
  - STOOLS WATERY [None]
  - THROMBOTIC THROMBOCYTOPENIC PURPURA [None]
